FAERS Safety Report 20839522 (Version 1)
Quarter: 2022Q2

REPORT INFORMATION
  Report Type: Spontaneous
  Country: US (occurrence: None)
  Receive Date: 20220516
  Receipt Date: 20220516
  Transmission Date: 20220721
  Serious: Yes (Hospitalization)
  Sender: FDA-Public Use
  Company Number: None

PATIENT
  Age: 58 Year
  Sex: Male

DRUGS (1)
  1. ZARXIO [Suspect]
     Active Substance: FILGRASTIM-SNDZ
     Indication: Neutropenia
     Dosage: 480MCG/.8ML?INJECT 0.8 ML (480 MCG) UNDER THE SKIN (SUBCUTANEOUS INJECTION) DAILY FOR 10 DAYS EVERY
     Route: 058
     Dates: start: 20220203

REACTIONS (2)
  - Therapy interrupted [None]
  - Chemotherapy [None]

NARRATIVE: CASE EVENT DATE: 20220512
